FAERS Safety Report 12664204 (Version 1)
Quarter: 2016Q3

REPORT INFORMATION
  Report Type: Spontaneous
  Country: US (occurrence: US)
  Receive Date: 20160818
  Receipt Date: 20160818
  Transmission Date: 20161109
  Serious: No
  Sender: FDA-Public Use
  Company Number: US-LNK INTERNATIONAL, INC.-1056477

PATIENT
  Age: 65 Year
  Sex: Female

DRUGS (8)
  1. NIGHTTIME SLEEP AID (DOXYLAMINE SUCCINATE) [Suspect]
     Active Substance: DOXYLAMINE SUCCINATE
     Indication: INITIAL INSOMNIA
  2. LEVOTHYROXINE. [Concomitant]
     Active Substance: LEVOTHYROXINE
  3. TRAMADOL HCL [Concomitant]
     Active Substance: TRAMADOL HYDROCHLORIDE
  4. WOMEN^S HEALTH MULTI VITAMIN [Concomitant]
  5. OMEPRAZOLE. [Concomitant]
     Active Substance: OMEPRAZOLE
  6. CALCIUM ACETATE. [Concomitant]
     Active Substance: CALCIUM ACETATE
  7. ALPRAZOLAM. [Concomitant]
     Active Substance: ALPRAZOLAM
  8. TYLENOL [Concomitant]
     Active Substance: ACETAMINOPHEN

REACTIONS (2)
  - Product substitution issue [None]
  - Headache [None]
